FAERS Safety Report 10642532 (Version 2)
Quarter: 2014Q4

REPORT INFORMATION
  Report Type: Spontaneous
  Country: HK (occurrence: HK)
  Receive Date: 20141210
  Receipt Date: 20141210
  Transmission Date: 20150529
  Serious: Yes (Other)
  Sender: FDA-Public Use
  Company Number: HK-ROCHE-1494884

PATIENT
  Sex: Female

DRUGS (3)
  1. MIRCERA [Suspect]
     Active Substance: PEGZEREPOETIN ALFA
     Dosage: 100MCG SC Q2WEEKS
     Route: 058
     Dates: start: 201408
  2. MIRCERA [Suspect]
     Active Substance: PEGZEREPOETIN ALFA
     Dosage: 75MCG SC Q2WEEKS
     Route: 058
     Dates: start: 201312, end: 201408
  3. MIRCERA [Suspect]
     Active Substance: PEGZEREPOETIN ALFA
     Indication: NEPHROGENIC ANAEMIA
     Dosage: 50MCG SC Q2WEEKS
     Route: 058
     Dates: start: 201310, end: 201312

REACTIONS (1)
  - Aplasia pure red cell [Recovering/Resolving]
